FAERS Safety Report 5340197-2 (Version None)
Quarter: 2007Q2

REPORT INFORMATION
  Report Type: 
  Country: None (occurrence: None)
  Receive Date: 20070531
  Receipt Date: 20070525
  Transmission Date: 20071010
  Serious: Yes (Hospitalization)
  Sender: FDA-Public Use
  Company Number: B0473091A

PATIENT
  Age: 11 Year
  Sex: Female

DRUGS (1)
  1. AMOXICILLIN + CLAVULANATE POTASSIUM [Suspect]
     Route: 065
     Dates: start: 20070226, end: 20070306

REACTIONS (4)
  - ABDOMINAL PAIN [None]
  - HAEMATOCHEZIA [None]
  - HAEMATURIA [None]
  - HENOCH-SCHONLEIN PURPURA [None]
